FAERS Safety Report 18383999 (Version 6)
Quarter: 2021Q3

REPORT INFORMATION
  Report Type: Report from Study
  Country: US (occurrence: US)
  Receive Date: 20201015
  Receipt Date: 20210819
  Transmission Date: 20211014
  Serious: Yes (Hospitalization, Other)
  Sender: FDA-Public Use
  Company Number: US-BRISTOL-MYERS SQUIBB COMPANY-BMS-2020-084951

PATIENT
  Age: 60 Year
  Sex: Male

DRUGS (1)
  1. NIVOLUMAB [Suspect]
     Active Substance: NIVOLUMAB
     Indication: GLIOBLASTOMA
     Dosage: UNK
     Route: 065
     Dates: start: 20200916

REACTIONS (1)
  - Brain oedema [Recovered/Resolved]

NARRATIVE: CASE EVENT DATE: 20201007
